FAERS Safety Report 8265926-X (Version None)
Quarter: 2012Q2

REPORT INFORMATION
  Report Type: 
  Country: None (occurrence: None)
  Receive Date: 20120403
  Receipt Date: 20120319
  Transmission Date: 20120825
  Serious: No
  Sender: FDA-Public Use
  Company Number: 2012MA003624

PATIENT
  Age: 48 Year
  Sex: Female

DRUGS (3)
  1. PACLITAXEL [Suspect]
     Indication: BREAST CANCER
     Dosage: IV
     Route: 042
  2. CYCLOPHOSPHAMIDE [Suspect]
  3. DOXORUBICIN HCL [Suspect]

REACTIONS (5)
  - CHOLECYSTITIS CHRONIC [None]
  - METASTASES TO CENTRAL NERVOUS SYSTEM [None]
  - CHOLELITHIASIS [None]
  - BALANCE DISORDER [None]
  - HYDROCEPHALUS [None]
